FAERS Safety Report 6962635-1 (Version None)
Quarter: 2010Q3

REPORT INFORMATION
  Report Type: 
  Country: None (occurrence: None)
  Receive Date: 20100902
  Receipt Date: 20100821
  Transmission Date: 20110219
  Serious: Yes (Other)
  Sender: FDA-Public Use
  Company Number: US-PFIZER INC-2010106139

PATIENT
  Sex: Female
  Weight: 77.098 kg

DRUGS (10)
  1. CHANTIX [Suspect]
     Indication: SMOKING CESSATION THERAPY
     Dosage: 0.5 MG, 1X/DAY
     Route: 048
     Dates: start: 20100101, end: 20100101
  2. CHANTIX [Suspect]
     Dosage: 1 MG, 2X/DAY
     Dates: start: 20100101, end: 20100301
  3. CRESTOR [Concomitant]
     Indication: BLOOD CHOLESTEROL INCREASED
     Dosage: 1 MG, UNK
  4. LISINOPRIL [Concomitant]
     Indication: HYPERTENSION
     Dosage: 5 MG, UNK
  5. VERAPAMIL [Concomitant]
     Dosage: 180 MG, DAILY
  6. GABAPENTIN [Concomitant]
     Dosage: 300 MG, 3X/DAY
  7. DARIFENACIN [Concomitant]
     Indication: BLADDER DISORDER
     Dosage: 15 MG, UNK
  8. SEROQUEL [Concomitant]
     Dosage: 300 MG, DAILY
  9. AMBIEN [Concomitant]
     Dosage: 10 MG, DAILY
  10. DEPAKOTE [Concomitant]
     Dosage: 650 MG, 4X/DAY

REACTIONS (3)
  - CARDIAC DISORDER [None]
  - HYPERTENSION [None]
  - WEIGHT INCREASED [None]
